FAERS Safety Report 24648074 (Version 2)
Quarter: 2024Q4

REPORT INFORMATION
  Report Type: Spontaneous
  Country: JP (occurrence: JP)
  Receive Date: 20241121
  Receipt Date: 20241205
  Transmission Date: 20250115
  Serious: Yes (Other)
  Sender: IPSEN BIOPHARMACEUTICALS, INC.
  Company Number: JP-IPSEN Group, Research and Development-2024-21936

PATIENT
  Age: 67 Year
  Sex: Male

DRUGS (3)
  1. TAZVERIK [Suspect]
     Active Substance: TAZEMETOSTAT HYDROBROMIDE
     Indication: Follicular lymphoma
     Route: 048
     Dates: start: 20181002, end: 20231219
  2. TAZVERIK [Suspect]
     Active Substance: TAZEMETOSTAT HYDROBROMIDE
     Route: 048
     Dates: start: 20210928, end: 202310
  3. VONOPRAZAN FUMARATE [Concomitant]
     Active Substance: VONOPRAZAN FUMARATE
     Route: 048
     Dates: start: 20230509

REACTIONS (1)
  - Myelodysplastic syndrome [Recovering/Resolving]

NARRATIVE: CASE EVENT DATE: 20240109
